FAERS Safety Report 15250205 (Version 1)
Quarter: 2018Q3

REPORT INFORMATION
  Report Type: Spontaneous
  Country: US (occurrence: US)
  Receive Date: 20180807
  Receipt Date: 20180807
  Transmission Date: 20181010
  Serious: Yes (Other)
  Sender: FDA-Public Use
  Company Number: US-MYLANLABS-2018M1057653

PATIENT
  Age: 20 Year
  Sex: Female
  Weight: 95 kg

DRUGS (4)
  1. VITAMIN D2 [Concomitant]
     Active Substance: ERGOCALCIFEROL
     Indication: PRODUCT USED FOR UNKNOWN INDICATION
     Dosage: UNK UNK, QW
  2. GLATIRAMER ACETATE INJECTION [Suspect]
     Active Substance: GLATIRAMER ACETATE
     Indication: RELAPSING-REMITTING MULTIPLE SCLEROSIS
     Dosage: 40 MG, 3XW
     Route: 058
     Dates: start: 20180723, end: 20180723
  3. BENADRYL [Concomitant]
     Active Substance: DIPHENHYDRAMINE HYDROCHLORIDE
     Indication: PRODUCT USED FOR UNKNOWN INDICATION
     Dosage: UNK
  4. MULTIVITAMIN                       /00097801/ [Concomitant]
     Active Substance: VITAMINS
     Indication: PRODUCT USED FOR UNKNOWN INDICATION
     Dosage: UNK

REACTIONS (13)
  - Injection site induration [Unknown]
  - Injection site pain [Unknown]
  - Muscle spasms [Unknown]
  - Flushing [Unknown]
  - Feeling hot [Recovered/Resolved]
  - Musculoskeletal stiffness [Recovered/Resolved]
  - Chest pain [Unknown]
  - Injection site mass [Not Recovered/Not Resolved]
  - Dizziness [Unknown]
  - Injection site erythema [Recovered/Resolved]
  - Chest discomfort [Unknown]
  - Injection site swelling [Unknown]
  - Injection site paraesthesia [Recovered/Resolved]

NARRATIVE: CASE EVENT DATE: 20180723
